FAERS Safety Report 4690099-X (Version None)
Quarter: 2005Q2

REPORT INFORMATION
  Report Type: 
  Country: None (occurrence: None)
  Receive Date: 20050613
  Receipt Date: 20050606
  Transmission Date: 20051028
  Serious: Yes (Hospitalization, Other)
  Sender: FDA-Public Use
  Company Number: DEWYE720306JUN05

PATIENT
  Age: 65 Year
  Sex: Male

DRUGS (3)
  1. RAPAMUNE [Suspect]
     Indication: PROPHYLAXIS AGAINST TRANSPLANT REJECTION
     Dosage: 5 MG ORAL
     Route: 048
     Dates: start: 20050202, end: 20050311
  2. MYCOPHENOLATE MOFETIL (MYCOPHENOLATE MOFETIL) [Concomitant]
  3. CORTICOSTEROID NOS (CORTICOSTEROID NOS) [Concomitant]

REACTIONS (2)
  - C-REACTIVE PROTEIN INCREASED [None]
  - PNEUMONIA [None]
